FAERS Safety Report 4343572-8 (Version None)
Quarter: 2004Q2

REPORT INFORMATION
  Report Type: 
  Country: None (occurrence: None)
  Receive Date: 20040419
  Receipt Date: 20040412
  Transmission Date: 20050107
  Serious: Yes (Other)
  Sender: FDA-Public Use
  Company Number: 2004020645

PATIENT

DRUGS (2)
  1. DIFLUCAN [Suspect]
     Indication: ILL-DEFINED DISORDER
     Dosage: INTRAVENOUS
     Route: 042
  2. AMPHOTERICIN B [Suspect]
     Indication: ILL-DEFINED DISORDER

REACTIONS (1)
  - MYOCARDIAL INFARCTION [None]
